FAERS Safety Report 19405370 (Version 1)
Quarter: 2021Q2

REPORT INFORMATION
  Report Type: Report from Study
  Country: CA (occurrence: CA)
  Receive Date: 20210611
  Receipt Date: 20210611
  Transmission Date: 20210717
  Serious: Yes (Hospitalization)
  Sender: FDA-Public Use
  Company Number: CA-ASTRAZENECA-2021A412266

PATIENT
  Sex: Female

DRUGS (6)
  1. ANTIBIOTIC [Suspect]
     Active Substance: UNSPECIFIED INGREDIENT
     Route: 065
  2. VENTOLIN [Concomitant]
     Active Substance: ALBUTEROL SULFATE
  3. SALBUTAMOL NEBULIZER [Concomitant]
     Active Substance: ALBUTEROL
  4. FASENRA [Suspect]
     Active Substance: BENRALIZUMAB
     Indication: ASTHMA
     Dosage: 30
     Route: 058
     Dates: start: 20210409
  5. PREDNISONE. [Concomitant]
     Active Substance: PREDNISONE
  6. BREO ELLIPTA [Concomitant]
     Active Substance: FLUTICASONE FUROATE\VILANTEROL TRIFENATATE

REACTIONS (3)
  - Anaphylactic reaction [Recovered/Resolved]
  - Hypersensitivity [Unknown]
  - Rash pruritic [Unknown]
